FAERS Safety Report 4633902-1 (Version None)
Quarter: 2005Q2

REPORT INFORMATION
  Report Type: 
  Country: None (occurrence: None)
  Receive Date: 20050413
  Receipt Date: 20050406
  Transmission Date: 20051028
  Serious: Yes (Hospitalization)
  Sender: FDA-Public Use
  Company Number: US-BRISTOL-MYERS SQUIBB COMPANY-12923975

PATIENT
  Age: 48 Year
  Sex: Female
  Weight: 65 kg

DRUGS (4)
  1. CETUXIMAB [Suspect]
     Indication: NON-SMALL CELL LUNG CANCER
     Dosage: INITIAL TX DATE: 21-FEB-05. PT HAD REC'D 6 COURSES TO DATE. TX HELD DUE TO EVENT.
     Route: 042
     Dates: start: 20050328, end: 20050328
  2. CARBOPLATIN [Suspect]
     Indication: NON-SMALL CELL LUNG CANCER
     Dosage: INITIAL TX DATE: 21-FEB-05. PT HAD REC'D 6 COURSES TO DATE.  TX HELD DUE TO EVENT.
     Route: 042
     Dates: start: 20050328, end: 20050328
  3. TAXOL [Suspect]
     Indication: NON-SMALL CELL LUNG CANCER
     Dosage: INITIAL TX DATE: 21-FEB-05. PT HAD REC'D 6 COURSES TO DATE.  TX HELD DUE TO EVENT.
     Route: 042
     Dates: start: 20050328, end: 20050328
  4. RADIATION THERAPY [Suspect]
     Indication: NON-SMALL CELL LUNG CANCER
     Dosage: TOTAL DOSE TO DATE: 4500 CGY. NO. OF FRACTIONS: 25.  NO. OF ELASPSED DAYS: 8  TX HELD DUE TO EVENT.
     Dates: start: 20050401, end: 20050401

REACTIONS (1)
  - SKIN EXFOLIATION [None]
